FAERS Safety Report 26072561 (Version 1)
Quarter: 2025Q4

REPORT INFORMATION
  Report Type: Report from Study
  Country: US (occurrence: US)
  Receive Date: 20251120
  Receipt Date: 20251120
  Transmission Date: 20260118
  Serious: Yes (Hospitalization)
  Sender: ABBVIE
  Company Number: US-ABBVIE-6543542

PATIENT
  Age: 58 Year
  Sex: Female
  Weight: 69.853 kg

DRUGS (3)
  1. RINVOQ [Suspect]
     Active Substance: UPADACITINIB
     Indication: Crohn^s disease
     Dosage: FORM STRENGTH- 45 MILLIGRAM
     Route: 048
     Dates: start: 20251018, end: 20251105
  2. SINGULAIR [Concomitant]
     Active Substance: MONTELUKAST SODIUM
     Indication: Asthma
     Dosage: BREO ELLIPTA
  3. BREO ELLIPTA [Concomitant]
     Active Substance: FLUTICASONE FUROATE\VILANTEROL TRIFENATATE
     Indication: Asthma
     Dosage: UNKNOWN

REACTIONS (7)
  - Pulmonary thrombosis [Not Recovered/Not Resolved]
  - Headache [Recovered/Resolved]
  - Fibrin D dimer increased [Not Recovered/Not Resolved]
  - Dyspnoea exertional [Unknown]
  - Dry mouth [Not Recovered/Not Resolved]
  - Respiratory tract congestion [Unknown]
  - Dyspnoea [Not Recovered/Not Resolved]

NARRATIVE: CASE EVENT DATE: 20250101
